FAERS Safety Report 6963108-2 (Version None)
Quarter: 2010Q3

REPORT INFORMATION
  Report Type: 
  Country: None (occurrence: None)
  Receive Date: 20100902
  Receipt Date: 20100830
  Transmission Date: 20110219
  Serious: Yes (Hospitalization, Other)
  Sender: FDA-Public Use
  Company Number: BR-PFIZER INC-2010101921

PATIENT
  Age: 61 Year
  Sex: Female
  Weight: 73 kg

DRUGS (15)
  1. IBUPROFEN [Suspect]
     Indication: OSTEOARTHRITIS
     Dosage: UNK
     Route: 048
     Dates: start: 20100112, end: 20100616
  2. NAPROXEN [Suspect]
     Indication: OSTEOARTHRITIS
     Dosage: UNK
     Route: 048
     Dates: start: 20100112, end: 20100616
  3. BLINDED *NO SUBJECT DRUG [Suspect]
     Indication: OSTEOARTHRITIS
     Dosage: UNK
     Route: 048
     Dates: start: 20100112, end: 20100616
  4. BLINDED *PLACEBO [Suspect]
     Indication: OSTEOARTHRITIS
     Dosage: UNK
     Route: 048
     Dates: start: 20100112, end: 20100616
  5. CELECOXIB [Suspect]
     Indication: OSTEOARTHRITIS
     Dosage: UNK
     Route: 048
     Dates: start: 20100112, end: 20100616
  6. IBUPROFEN [Suspect]
     Dosage: UNK
     Route: 048
     Dates: start: 20100112, end: 20100616
  7. NAPROXEN [Suspect]
     Dosage: UNK
     Route: 048
     Dates: start: 20100112, end: 20100616
  8. IBUPROFEN [Suspect]
     Indication: RHEUMATOID ARTHRITIS
  9. NAPROXEN [Suspect]
     Indication: RHEUMATOID ARTHRITIS
  10. BLINDED *NO SUBJECT DRUG [Suspect]
     Indication: RHEUMATOID ARTHRITIS
  11. BLINDED *PLACEBO [Suspect]
     Indication: RHEUMATOID ARTHRITIS
  12. CELECOXIB [Suspect]
     Indication: RHEUMATOID ARTHRITIS
  13. IBUPROFEN [Suspect]
  14. NAPROXEN [Suspect]
  15. NEXIUM [Concomitant]
     Indication: GASTRITIS PROPHYLAXIS
     Dosage: 20 OR 40 MG, DAILY
     Route: 048

REACTIONS (2)
  - CARDIAC ARREST [None]
  - RESPIRATORY ARREST [None]
